FAERS Safety Report 9089552 (Version 3)
Quarter: 2013Q2

REPORT INFORMATION
  Report Type: Report from Study
  Country: US (occurrence: US)
  Receive Date: 20130201
  Receipt Date: 20130404
  Transmission Date: 20140414
  Serious: Yes (Hospitalization, Other)
  Sender: FDA-Public Use
  Company Number: US-ABBOTT-13P-163-1042339-00

PATIENT
  Age: 32 Year
  Sex: Female
  Weight: 115.77 kg

DRUGS (11)
  1. HUMIRA PEN [Suspect]
     Indication: CROHN^S DISEASE
     Dates: start: 201102, end: 201106
  2. HUMIRA PEN [Suspect]
     Dates: start: 201106, end: 201201
  3. HUMIRA PEN [Suspect]
     Dates: start: 201202, end: 201301
  4. HUMIRA PEN [Suspect]
  5. ALBUTEROL [Concomitant]
     Indication: PRODUCT USED FOR UNKNOWN INDICATION
  6. CELEXA [Concomitant]
     Indication: PRODUCT USED FOR UNKNOWN INDICATION
  7. ESTRADIOL [Concomitant]
     Indication: HORMONE REPLACEMENT THERAPY
  8. PRILOSEC [Concomitant]
     Indication: PRODUCT USED FOR UNKNOWN INDICATION
  9. FLEXERIL [Concomitant]
     Indication: PRODUCT USED FOR UNKNOWN INDICATION
  10. NORCO [Concomitant]
     Indication: PRODUCT USED FOR UNKNOWN INDICATION
  11. MARIJUANA [Concomitant]
     Indication: NAUSEA

REACTIONS (17)
  - Gastrointestinal sounds abnormal [Recovered/Resolved]
  - Gastrointestinal sounds abnormal [Recovered/Resolved]
  - Large intestinal ulcer [Recovered/Resolved]
  - Oophorectomy [Recovered/Resolved]
  - Diarrhoea haemorrhagic [Recovered/Resolved]
  - Diarrhoea [Recovering/Resolving]
  - Viral upper respiratory tract infection [Recovering/Resolving]
  - Abdominal pain [Recovering/Resolving]
  - Reaction to azo-dyes [Not Recovered/Not Resolved]
  - Sinusitis [Recovered/Resolved]
  - Crohn^s disease [Not Recovered/Not Resolved]
  - Lipohypertrophy [Recovering/Resolving]
  - Pituitary-dependent Cushing^s syndrome [Unknown]
  - Photosensitivity reaction [Unknown]
  - Pelvic pain [Recovered/Resolved]
  - Endometriosis [Unknown]
  - Hysterectomy [Unknown]
